FAERS Safety Report 4928835-7 (Version None)
Quarter: 2006Q1

REPORT INFORMATION
  Report Type: 
  Country: None (occurrence: None)
  Receive Date: 20060223
  Receipt Date: 20060215
  Transmission Date: 20060701
  Serious: Yes (Other)
  Sender: FDA-Public Use
  Company Number: 2006023079

PATIENT
  Age: 38 Year
  Sex: Female
  Weight: 136.0791 kg

DRUGS (4)
  1. ZYRTEC-D 12 HOUR [Suspect]
     Indication: HYPERSENSITIVITY
     Dosage: EVERY DAY , ORAL
     Route: 048
     Dates: end: 20060206
  2. ZYRTEC-D 12 HOUR [Suspect]
     Indication: RESPIRATORY TRACT CONGESTION
     Dosage: EVERY DAY , ORAL
     Route: 048
     Dates: end: 20060206
  3. SYNTHROID [Concomitant]
  4. ALL OTHER THERAPEUTIC PRODUCTS [Concomitant]

REACTIONS (15)
  - ANTI-THYROID ANTIBODY POSITIVE [None]
  - DEMYELINATION [None]
  - FALL [None]
  - FLUSHING [None]
  - HEART RATE INCREASED [None]
  - HEPATIC ENZYME INCREASED [None]
  - HYPERTONIC BLADDER [None]
  - MALAISE [None]
  - NEUROGENIC BLADDER [None]
  - NEUROPATHY [None]
  - POLLAKIURIA [None]
  - POLYNEUROPATHY [None]
  - PYREXIA [None]
  - THYROID NEOPLASM [None]
  - URINARY TRACT INFECTION [None]
